FAERS Safety Report 23465988 (Version 1)
Quarter: 2024Q1

REPORT INFORMATION
  Report Type: Spontaneous
  Country: US (occurrence: US)
  Receive Date: 20240201
  Receipt Date: 20240201
  Transmission Date: 20240409
  Serious: Yes (Other)
  Sender: FDA-Public Use
  Company Number: US-PFIZER INC-202400030014

PATIENT
  Age: 45 Year
  Sex: Male

DRUGS (1)
  1. VOXELOTOR [Suspect]
     Active Substance: VOXELOTOR
     Dosage: UNK

REACTIONS (1)
  - Cerebrovascular accident [Unknown]
